FAERS Safety Report 5311827-6 (Version None)
Quarter: 2007Q2

REPORT INFORMATION
  Report Type: 
  Country: None (occurrence: None)
  Receive Date: 20070427
  Receipt Date: 20070427
  Transmission Date: 20071010
  Serious: Yes (Other)
  Sender: FDA-Public Use
  Company Number: None

PATIENT
  Age: 87 Year
  Sex: Male
  Weight: 109 kg

DRUGS (1)
  1. WARFARIN SODIUM [Suspect]
     Indication: ANTICOAGULANT THERAPY
     Dosage: 1MG DAILY X2MG M/THUR PO
     Route: 048
     Dates: start: 20050603, end: 20070413

REACTIONS (1)
  - INTERNATIONAL NORMALISED RATIO INCREASED [None]
